FAERS Safety Report 12722606 (Version 1)
Quarter: 2016Q3

REPORT INFORMATION
  Report Type: Spontaneous
  Country: FR (occurrence: FR)
  Receive Date: 20160907
  Receipt Date: 20160907
  Transmission Date: 20161109
  Serious: Yes (Other)
  Sender: FDA-Public Use
  Company Number: PHHY2016FR119387

PATIENT
  Age: 36 Year
  Sex: Male

DRUGS (7)
  1. NOVORAPID [Concomitant]
     Active Substance: INSULIN ASPART
     Indication: PRODUCT USED FOR UNKNOWN INDICATION
     Route: 065
  2. LAMPRENE [Suspect]
     Active Substance: CLOFAZIMINE
     Indication: TUBERCULOSIS
     Dosage: 100 MG, QD
     Route: 048
     Dates: start: 20160730
  3. NEFOPAM [Concomitant]
     Active Substance: NEFOPAM
     Indication: PRODUCT USED FOR UNKNOWN INDICATION
     Route: 065
  4. ADIAZINE [Suspect]
     Active Substance: SULFADIAZINE
     Indication: TUBERCULOSIS
     Dosage: 2 G, TID
     Route: 048
     Dates: start: 20160730
  5. NICOPATCH [Concomitant]
     Active Substance: NICOTINE
     Indication: PRODUCT USED FOR UNKNOWN INDICATION
     Route: 065
  6. MYNOCINE [Suspect]
     Active Substance: MINOCYCLINE HYDROCHLORIDE
     Indication: TUBERCULOSIS
     Dosage: 200 MG, QD
     Route: 048
     Dates: start: 20160730
  7. INSULIN GLARGINE [Concomitant]
     Active Substance: INSULIN GLARGINE
     Indication: PRODUCT USED FOR UNKNOWN INDICATION
     Route: 065

REACTIONS (1)
  - Renal colic [Recovered/Resolved]

NARRATIVE: CASE EVENT DATE: 20160809
